FAERS Safety Report 23405487 (Version 2)
Quarter: 2024Q1

REPORT INFORMATION
  Report Type: Spontaneous
  Country: US (occurrence: None)
  Receive Date: 20240116
  Receipt Date: 20240228
  Transmission Date: 20240410
  Serious: Yes (Hospitalization, Other)
  Sender: FDA-Public Use
  Company Number: 2024A005991

PATIENT

DRUGS (1)
  1. CALQUENCE [Suspect]
     Active Substance: ACALABRUTINIB
     Route: 048

REACTIONS (5)
  - Thrombosis [Unknown]
  - Urinary tract obstruction [Unknown]
  - Blood urine present [Unknown]
  - Urinary tract infection [Unknown]
  - Pneumonia [Unknown]
